FAERS Safety Report 9624315 (Version 2)
Quarter: 2014Q1

REPORT INFORMATION
  Report Type: Report from Study
  Country: AU (occurrence: AU)
  Receive Date: 20131015
  Receipt Date: 20140131
  Transmission Date: 20141002
  Serious: Yes (Other)
  Sender: FDA-Public Use
  Company Number: PHHY2013AU114858

PATIENT
  Age: 72 Year
  Sex: Female

DRUGS (23)
  1. ACLASTA [Suspect]
     Dosage: UNK UKN, UNK
     Route: 042
     Dates: start: 20110404
  2. ACLASTA [Suspect]
     Dosage: UNK UKN, UNK
     Route: 042
     Dates: start: 20120727
  3. BACLOFEN [Concomitant]
     Dosage: 1 DF, BEFORE BED
  4. CHOLECALCIFEROL [Concomitant]
     Dosage: 1 DF, BID
  5. CLONEA [Concomitant]
     Dosage: UNK, BID APPLY AS DIRECTED
  6. CLOPIDOGREL [Concomitant]
     Dosage: 1 DF, ONE IN MORNING
  7. DOCUSATE SODIUM\SENNOSIDES [Concomitant]
     Dosage: 1 DF, BID
  8. DOMPERIDONE [Concomitant]
     Dosage: 1 DF, BID (BEFORE MEAL)
  9. ENDONE [Concomitant]
     Dosage: 1 DF, TID (AS DIRECTED)
  10. FERRO F [Concomitant]
     Dosage: 1 DF,(IN EVENING) ASCO 310 MG, FERRO 350 MCG
  11. FLUDROCORTISONE [Concomitant]
     Dosage: 1 DF,(IN MORNING)
  12. KINSON [Concomitant]
     Dosage: 1 DF, QID
  13. KINSON [Concomitant]
     Dosage: 2 DF, (BEFORE BED)
  14. MADOPAR DISPERSIBL [Concomitant]
     Dosage: 1 DF, QID (AS DIRECTED)
  15. METHOPT [Concomitant]
     Dosage: 1 DRP, TID (BOTH SIDE)
  16. MIRTAZAPINE [Concomitant]
     Dosage: 1.5 UNK,(BEFORE BED)
  17. MOVICOL [Concomitant]
     Dosage: 1 DF,(IN MORNING)
  18. OXYBUTYNIN [Concomitant]
     Dosage: 1 DF,(BEFORE BED)
  19. OXYCONTIN [Concomitant]
     Dosage: 1 DF, BID
  20. PANADOL OSTEO [Concomitant]
     Dosage: 2 DF, TID
  21. PANTOPRAZOL [Concomitant]
     Dosage: 1 DF,(IN MORNING)
  22. SOFRADEX                           /00049501/ [Concomitant]
     Dosage: 4 DF, BID (RIGHT SIDE)
  23. ZOLEDRONIC ACID [Concomitant]
     Dosage: 5 MG, ANNUALLY
     Route: 041

REACTIONS (7)
  - Neuropathy peripheral [Unknown]
  - Osteoporotic fracture [Unknown]
  - Adjustment disorder with mixed anxiety and depressed mood [Unknown]
  - Dry eye [Unknown]
  - Faecal incontinence [Unknown]
  - Urinary incontinence [Unknown]
  - Gastrooesophageal reflux disease [Unknown]
